FAERS Safety Report 23623109 (Version 2)
Quarter: 2024Q4

REPORT INFORMATION
  Report Type: Other
  Country: IT (occurrence: IT)
  Receive Date: 20240312
  Receipt Date: 20241230
  Transmission Date: 20250114
  Serious: Yes (Death, Hospitalization, Other)
  Sender: Steriscience PTE
  Company Number: IT-EMA-DD-20210510-faizan_m-105303

PATIENT
  Age: 64 Year
  Sex: Male

DRUGS (21)
  1. MEROPENEM [Suspect]
     Active Substance: MEROPENEM
     Indication: Antibiotic therapy
     Dosage: UNK
     Route: 065
  2. PIPERACILLIN SODIUM\TAZOBACTAM SODIUM [Suspect]
     Active Substance: PIPERACILLIN SODIUM\TAZOBACTAM SODIUM
     Indication: Product used for unknown indication
     Dosage: UNK
     Route: 065
  3. ISAVUCONAZONIUM SULFATE [Suspect]
     Active Substance: ISAVUCONAZONIUM SULFATE
     Indication: Prophylaxis
     Dosage: 200 MILLIGRAM, QD
     Route: 048
     Dates: start: 20200328, end: 20200329
  4. ISAVUCONAZONIUM SULFATE [Suspect]
     Active Substance: ISAVUCONAZONIUM SULFATE
     Dosage: 200 MILLIGRAM, QD
     Route: 042
     Dates: start: 20200330, end: 20200428
  5. MYCOPHENOLIC ACID [Suspect]
     Active Substance: MYCOPHENOLIC ACID
     Indication: COVID-19
     Dosage: UNK
     Route: 065
  6. LOPINAVIR\RITONAVIR [Suspect]
     Active Substance: LOPINAVIR\RITONAVIR
     Indication: COVID-19
     Dosage: UNK
     Route: 065
  7. METHYLPREDNISOLONE [Suspect]
     Active Substance: METHYLPREDNISOLONE
     Indication: COVID-19
     Dosage: 1 MG/KG, UNK
     Route: 065
  8. METHYLPREDNISOLONE [Suspect]
     Active Substance: METHYLPREDNISOLONE
     Dosage: 0.5 MICROGRAM/KILOGRAM
     Route: 065
  9. AZITHROMYCIN DIHYDRATE [Suspect]
     Active Substance: AZITHROMYCIN DIHYDRATE
     Indication: Off label use
     Dosage: UNK
     Route: 065
  10. AZITHROMYCIN DIHYDRATE [Suspect]
     Active Substance: AZITHROMYCIN DIHYDRATE
     Indication: COVID-19
     Dosage: UNK
     Route: 065
  11. HYDROXYCHLOROQUINE [Suspect]
     Active Substance: HYDROXYCHLOROQUINE
     Indication: COVID-19
     Dosage: UNK
     Route: 065
  12. ACYCLOVIR [Suspect]
     Active Substance: ACYCLOVIR
     Indication: Prophylaxis
     Dosage: UNK
     Route: 065
  13. ATOVAQUONE [Suspect]
     Active Substance: ATOVAQUONE
     Indication: Prophylaxis
     Dosage: UNK
     Route: 065
  14. DEFIBROTIDE SODIUM [Suspect]
     Active Substance: DEFIBROTIDE SODIUM
     Indication: COVID-19
     Dosage: 6.25 MG/KG, QID (4/DAY)
     Route: 042
  15. DEFIBROTIDE SODIUM [Suspect]
     Active Substance: DEFIBROTIDE SODIUM
     Dosage: 6.25 MG/KG, QID (4/DAY)
     Route: 042
  16. REMDESIVIR [Suspect]
     Active Substance: REMDESIVIR
     Indication: COVID-19
     Dosage: 100 MILLIGRAM, Q24H, RECEIVED ON 57-DAY
     Route: 065
  17. LETERMOVIR [Suspect]
     Active Substance: LETERMOVIR
     Indication: Prophylaxis
     Dosage: UNK UNK, UNKNOWN
     Route: 065
  18. DAPTOMYCIN [Suspect]
     Active Substance: DAPTOMYCIN
     Indication: Antibiotic therapy
     Dosage: UNKNOWN
     Route: 065
  19. CYCLOSPORINE [Suspect]
     Active Substance: CYCLOSPORINE
     Indication: COVID-19
     Dosage: UNKNOWN
     Route: 065
  20. TOCILIZUMAB [Suspect]
     Active Substance: TOCILIZUMAB
     Indication: COVID-19
     Dosage: 6 MG/KG, SINGLE
     Route: 065
  21. ISAVUCONAZOLE [Suspect]
     Active Substance: ISAVUCONAZOLE
     Indication: Prophylaxis
     Dosage: UNK
     Route: 065

REACTIONS (9)
  - Aspergillus infection [Fatal]
  - COVID-19 [Fatal]
  - Drug level increased [None]
  - Altered state of consciousness [Unknown]
  - Septic shock [None]
  - Hepatic failure [None]
  - Drug interaction [Unknown]
  - Product use in unapproved indication [Unknown]
  - Off label use [Unknown]

NARRATIVE: CASE EVENT DATE: 20200402
